FAERS Safety Report 9537838 (Version 2)
Quarter: 2013Q4

REPORT INFORMATION
  Report Type: Spontaneous
  Country: IT (occurrence: FR)
  Receive Date: 20130919
  Receipt Date: 20131216
  Transmission Date: 20140711
  Serious: Yes (Hospitalization)
  Sender: FDA-Public Use
  Company Number: FR-FRI-1000048909

PATIENT
  Age: 74 Year
  Sex: Male

DRUGS (8)
  1. NEBIVOLOL [Suspect]
     Route: 048
     Dates: start: 201304, end: 20130905
  2. PLAVIX [Suspect]
     Route: 048
     Dates: start: 201304
  3. EUPANTOL [Suspect]
     Route: 048
     Dates: start: 201304
  4. KARDEGIC [Suspect]
     Route: 048
     Dates: start: 201304
  5. LASILIX [Suspect]
     Route: 048
     Dates: start: 201304
  6. VANCOMYCINE [Suspect]
     Dates: start: 201308
  7. ORBENINE [Suspect]
     Dates: start: 201308
  8. GENTAMYCINE [Suspect]
     Dates: start: 201308

REACTIONS (4)
  - Dermatitis exfoliative [Unknown]
  - Pruritus [Unknown]
  - Dermatitis psoriasiform [Unknown]
  - Eosinophilia [Recovered/Resolved]
